FAERS Safety Report 23233257 (Version 1)
Quarter: 2023Q4

REPORT INFORMATION
  Report Type: Spontaneous
  Country: CN (occurrence: CN)
  Receive Date: 20231128
  Receipt Date: 20231128
  Transmission Date: 20240109
  Serious: Yes (Life-Threatening)
  Sender: FDA-Public Use
  Company Number: CN-JNJFOC-20231157255

PATIENT
  Age: 43 Year
  Sex: Female

DRUGS (3)
  1. CHILDRENS MOTRIN [Suspect]
     Active Substance: IBUPROFEN
     Indication: Antipyresis
     Route: 048
     Dates: start: 20231112, end: 20231112
  2. CHILDRENS MOTRIN [Suspect]
     Active Substance: IBUPROFEN
     Indication: Productive cough
  3. CHILDRENS MOTRIN [Suspect]
     Active Substance: IBUPROFEN
     Indication: Cough

REACTIONS (7)
  - Dyspnoea [Recovered/Resolved]
  - Eyelid oedema [Recovering/Resolving]
  - Cough [Recovering/Resolving]
  - Laryngeal oedema [Recovering/Resolving]
  - Drug hypersensitivity [Recovering/Resolving]
  - Product administered to patient of inappropriate age [Recovering/Resolving]
  - Product use in unapproved indication [Recovering/Resolving]

NARRATIVE: CASE EVENT DATE: 20231112
